FAERS Safety Report 8145249-X (Version None)
Quarter: 2012Q1

REPORT INFORMATION
  Report Type: 
  Country: None (occurrence: None)
  Receive Date: 20120217
  Receipt Date: 20120214
  Transmission Date: 20120608
  Serious: Yes (Hospitalization)
  Sender: FDA-Public Use
  Company Number: PT-EISAI INC-E2080-00247-SPO-PT

PATIENT
  Sex: Female
  Weight: 43 kg

DRUGS (5)
  1. INOVELON [Suspect]
     Indication: EPILEPSY
     Dosage: 1200 MG
     Route: 048
     Dates: start: 20091124, end: 20091214
  2. VALPROATE SODIUM [Concomitant]
     Indication: EPILEPSY
     Route: 048
     Dates: start: 20030101
  3. CLONAZEPAM [Concomitant]
     Route: 048
     Dates: start: 20030101
  4. LEVETIRACETAM [Concomitant]
     Dates: start: 20030101
  5. VALPROIC ACID [Concomitant]
     Indication: EPILEPSY

REACTIONS (1)
  - STEVENS-JOHNSON SYNDROME [None]
